FAERS Safety Report 5209732-9 (Version None)
Quarter: 2006Q4

REPORT INFORMATION
  Report Type: 
  Country: None (occurrence: None)
  Receive Date: 20061128
  Receipt Date: 20051018
  Transmission Date: 20070319
  Serious: Yes (Other)
  Sender: FDA-Public Use
  Company Number: 2005142630

PATIENT
  Age: 59 Year
  Sex: Female

DRUGS (7)
  1. TIKOSYN [Suspect]
     Indication: ATRIAL FIBRILLATION
     Dosage: (250 MCG)
     Dates: start: 20051008
  2. ASPIRIN [Concomitant]
  3. PROTONIX [Concomitant]
  4. PLAVIX [Concomitant]
  5. AMBIEN [Concomitant]
  6. NEURONTIN [Concomitant]
  7. LIPITOR [Concomitant]

REACTIONS (6)
  - ASTHENIA [None]
  - DIZZINESS [None]
  - HEART RATE INCREASED [None]
  - NAUSEA [None]
  - PALPITATIONS [None]
  - SYNCOPE [None]
